FAERS Safety Report 13294113 (Version 3)
Quarter: 2017Q2

REPORT INFORMATION
  Report Type: Spontaneous
  Country: US (occurrence: US)
  Receive Date: 20170303
  Receipt Date: 20170419
  Transmission Date: 20170830
  Serious: No
  Sender: FDA-Public Use
  Company Number: US-ALLERGAN-1707810US

PATIENT
  Age: 60 Year
  Sex: Male

DRUGS (2)
  1. PRED FORTE [Suspect]
     Active Substance: PREDNISOLONE ACETATE
     Indication: CORNEAL OEDEMA
  2. PRED FORTE [Suspect]
     Active Substance: PREDNISOLONE ACETATE
     Indication: CORNEAL GRAFT REJECTION
     Dosage: UNK, BID
     Route: 047
     Dates: start: 201703

REACTIONS (1)
  - No adverse event [Unknown]
